FAERS Safety Report 21968600 (Version 1)
Quarter: 2023Q1

REPORT INFORMATION
  Report Type: Spontaneous
  Country: US (occurrence: None)
  Receive Date: 20230207
  Receipt Date: 20230207
  Transmission Date: 20230418
  Serious: Yes (Life-Threatening, Disabling, Other)
  Sender: FDA-Public Use
  Company Number: None

PATIENT
  Age: 65 Year
  Sex: Female
  Weight: 63 kg

DRUGS (9)
  1. ESCITALOPRAM [Suspect]
     Active Substance: ESCITALOPRAM OXALATE
     Indication: Depression
     Dosage: FREQUENCY : DAILY;?
     Route: 048
     Dates: start: 20180418, end: 20210901
  2. ESCITALOPRAM OXALATE [Suspect]
     Active Substance: ESCITALOPRAM OXALATE
     Indication: Depression
     Dosage: FREQUENCY : DAILY;?
     Route: 048
     Dates: start: 20180418, end: 20210901
  3. SUBOXONE [Concomitant]
     Active Substance: BUPRENORPHINE HYDROCHLORIDE\NALOXONE HYDROCHLORIDE
  4. AMBIEN [Concomitant]
     Active Substance: ZOLPIDEM TARTRATE
  5. FLEXERIL [Concomitant]
     Active Substance: CYCLOBENZAPRINE HYDROCHLORIDE
  6. Centrum Silver for 50+ Women [Concomitant]
  7. PROBIOTICS NOS [Concomitant]
     Active Substance: PROBIOTICS NOS
  8. METAMUCIL [Concomitant]
     Active Substance: PLANTAGO SEED
  9. VITAMIN D3 [Concomitant]
     Active Substance: CHOLECALCIFEROL

REACTIONS (15)
  - Purpura [None]
  - Purpura senile [None]
  - Palpitations [None]
  - Asocial behaviour [None]
  - Electrocardiogram QT prolonged [None]
  - Hypertension [None]
  - Blister [None]
  - Peripheral swelling [None]
  - Infection [None]
  - Drug ineffective [None]
  - Therapy cessation [None]
  - Feeling abnormal [None]
  - Chest discomfort [None]
  - Self esteem decreased [None]
  - Fear [None]

NARRATIVE: CASE EVENT DATE: 20180518
